FAERS Safety Report 7028193-0 (Version None)
Quarter: 2010Q3

REPORT INFORMATION
  Report Type: 
  Country: None (occurrence: None)
  Receive Date: 20100930
  Receipt Date: 20100914
  Transmission Date: 20110219
  Serious: Yes (Disabling, Other)
  Sender: FDA-Public Use
  Company Number: ACO_02223_2010

PATIENT
  Sex: Female
  Weight: 86.1834 kg

DRUGS (9)
  1. AMPYRA [Suspect]
     Indication: GAIT DISTURBANCE
     Dosage: (10 MG BID ORAL)
     Route: 048
     Dates: start: 20100817, end: 20100913
  2. AMPYRA [Suspect]
     Indication: MULTIPLE SCLEROSIS
     Dosage: (10 MG BID ORAL)
     Route: 048
     Dates: start: 20100817, end: 20100913
  3. AVONEX [Concomitant]
  4. PAXIL [Concomitant]
  5. GABAPENTIN [Concomitant]
  6. NORFLEX /00039301/ [Concomitant]
  7. BLADDER DRUG [Concomitant]
  8. XANAX [Concomitant]
  9. LORTAB [Concomitant]

REACTIONS (6)
  - ABASIA [None]
  - DIZZINESS [None]
  - DYSSTASIA [None]
  - HEAD TITUBATION [None]
  - MULTIPLE SCLEROSIS RELAPSE [None]
  - NAUSEA [None]
